FAERS Safety Report 4416948-8 (Version None)
Quarter: 2004Q3

REPORT INFORMATION
  Report Type: 
  Country: None (occurrence: None)
  Receive Date: 20040806
  Receipt Date: 20040701
  Transmission Date: 20050211
  Serious: Yes (Other)
  Sender: FDA-Public Use
  Company Number: PHEH2004US07112

PATIENT
  Age: 57 Year
  Sex: Female

DRUGS (11)
  1. ZOMETA [Suspect]
     Indication: MULTIPLE MYELOMA
     Dosage: 4 MG EVERY 4 WEEKS
     Route: 042
     Dates: start: 20020621, end: 20030822
  2. DECADRON [Concomitant]
     Indication: MULTIPLE MYELOMA
     Dosage: 40 MG FOR 4 DAYS MONTHLY
     Dates: start: 20010201, end: 20030822
  3. DAPSONE [Concomitant]
     Indication: PROPHYLAXIS AGAINST TRANSPLANT REJECTION
     Dosage: 100 MG MWF
  4. TEGRETOL [Concomitant]
     Indication: CONVULSION
     Dosage: ADJUSTED PER NEUROLOGY
  5. DIGOXIN [Concomitant]
     Indication: THROMBOSIS PROPHYLAXIS
  6. COUMADIN [Concomitant]
     Indication: ATRIAL FIBRILLATION
  7. CELEXA [Concomitant]
     Indication: DEPRESSION
     Dosage: 20 MG, QD
  8. ACYCLOVIR [Concomitant]
     Indication: PROPHYLAXIS
     Dosage: 200 MG, BID
  9. PEPCID [Concomitant]
     Indication: REFLUX OESOPHAGITIS
     Dosage: 20 MG, BID
     Route: 048
  10. CARBATROL [Concomitant]
  11. AREDIA [Suspect]
     Indication: MULTIPLE MYELOMA
     Dosage: 90 MG EVERY 4 WEEKS
     Route: 042
     Dates: start: 20000111, end: 20020524

REACTIONS (9)
  - ABSCESS DRAINAGE [None]
  - BONE DEBRIDEMENT [None]
  - BONE DISORDER [None]
  - OSTEOMYELITIS [None]
  - OSTEONECROSIS [None]
  - PAIN [None]
  - PURULENT DISCHARGE [None]
  - STOMATITIS [None]
  - SWELLING [None]
